FAERS Safety Report 7824135-6 (Version None)
Quarter: 2011Q4

REPORT INFORMATION
  Report Type: 
  Country: None (occurrence: None)
  Receive Date: 20111019
  Receipt Date: 20111014
  Transmission Date: 20120403
  Serious: Yes (Death)
  Sender: FDA-Public Use
  Company Number: FR-PFIZER INC-2011239976

PATIENT
  Age: 69 Year
  Sex: Male
  Weight: 55 kg

DRUGS (4)
  1. SUTENT [Suspect]
     Indication: RENAL CANCER METASTATIC
     Dosage: 50 MG, 1X/DAY
     Route: 048
     Dates: start: 20110427, end: 20110928
  2. LASIX [Concomitant]
     Dosage: 20 DAILY
     Route: 048
     Dates: start: 20110929
  3. PREDNISONE [Concomitant]
     Dosage: 20 DAILY
     Route: 048
     Dates: start: 20110929
  4. ACETAMINOPHEN AND CODEINE PHOSPHATE [Concomitant]
     Dosage: 3G/180
     Route: 048
     Dates: start: 20110405

REACTIONS (1)
  - CARDIO-RESPIRATORY ARREST [None]
